FAERS Safety Report 23357243 (Version 1)
Quarter: 2023Q4

REPORT INFORMATION
  Report Type: Spontaneous
  Country: US (occurrence: None)
  Receive Date: 20231230
  Receipt Date: 20231230
  Transmission Date: 20240110
  Serious: Yes (Other)
  Sender: FDA-Public Use
  Company Number: None

PATIENT
  Age: 70 Year
  Sex: Male
  Weight: 80.1 kg

DRUGS (4)
  1. CALCIPOTRIENE\FLUOROURACIL [Suspect]
     Active Substance: CALCIPOTRIENE\FLUOROURACIL
     Indication: Actinic keratosis
     Dosage: OTHER QUANTITY : 60 GRAMS;?FREQUENCY : TWICE A DAY;?
     Route: 061
     Dates: start: 20230830, end: 20231111
  2. HYDROCHLOROTHIAZIDE [Concomitant]
     Active Substance: HYDROCHLOROTHIAZIDE
  3. LISINOPRIL [Concomitant]
     Active Substance: LISINOPRIL
  4. AMLODIPINE [Concomitant]
     Active Substance: AMLODIPINE BESYLATE

REACTIONS (3)
  - Scrotal dermatitis [None]
  - Rash erythematous [None]
  - Rash [None]

NARRATIVE: CASE EVENT DATE: 20231126
